FAERS Safety Report 5861333-5 (Version None)
Quarter: 2008Q3

REPORT INFORMATION
  Report Type: 
  Country: None (occurrence: None)
  Receive Date: 20080827
  Receipt Date: 20080422
  Transmission Date: 20090109
  Serious: No
  Sender: FDA-Public Use
  Company Number: US-ABBOTT-08P-163-0448375-00

PATIENT
  Sex: Female
  Weight: 52.21 kg

DRUGS (2)
  1. COATED PDS [Suspect]
     Indication: BLOOD CHOLESTEROL INCREASED
     Route: 048
     Dates: start: 20080416
  2. SLEEPING PILL [Concomitant]
     Indication: INSOMNIA
     Route: 048

REACTIONS (2)
  - HOT FLUSH [None]
  - INSOMNIA [None]
